FAERS Safety Report 24169749 (Version 1)
Quarter: 2024Q3

REPORT INFORMATION
  Report Type: Report from Study
  Country: US (occurrence: US)
  Receive Date: 20240803
  Receipt Date: 20240803
  Transmission Date: 20241016
  Serious: Yes (Death)
  Sender: ABBVIE
  Company Number: US-ABBVIE-5864489

PATIENT
  Sex: Male

DRUGS (12)
  1. VENCLEXTA [Suspect]
     Active Substance: VENETOCLAX
     Indication: Chronic lymphocytic leukaemia
     Dosage: TOOK 20MG ON DAYS 1 TO 7
     Route: 048
  2. VENCLEXTA [Suspect]
     Active Substance: VENETOCLAX
     Indication: Chronic lymphocytic leukaemia
     Dosage: TOOK 50MG ON DAYS 8 TO 14
     Route: 048
  3. VENCLEXTA [Suspect]
     Active Substance: VENETOCLAX
     Indication: Chronic lymphocytic leukaemia
     Dosage: 100 MG ON DAYS 15 TO 21
     Route: 048
  4. VENCLEXTA [Suspect]
     Active Substance: VENETOCLAX
     Indication: Chronic lymphocytic leukaemia
     Dosage: 200MG ON DAYS 22 TO 28
     Route: 048
  5. DEMEROL [Suspect]
     Active Substance: MEPERIDINE HYDROCHLORIDE
     Indication: Product used for unknown indication
     Dosage: INJECTED 1 MILLILITER AS NEEDED FOR RITUXAN REACTION
     Route: 030
  6. RITUXAN [Suspect]
     Active Substance: RITUXIMAB
     Indication: Product used for unknown indication
     Route: 065
  7. FINASTERIDE [Concomitant]
     Active Substance: FINASTERIDE
     Indication: Product used for unknown indication
     Dosage: TAKEN 1 TABLET BY ORAL ROUTE EVERY DAY
     Route: 048
  8. TAMSULOSIN [Concomitant]
     Active Substance: TAMSULOSIN
     Indication: Product used for unknown indication
     Dosage: TAKEN 1 CAPSULE BY ORAL ROUTE EVERY DAY 1/2 HOUR FOLLOWING THE SAME MEAL EACH DAY
     Route: 048
  9. BREZTRI [Concomitant]
     Active Substance: BUDESONIDE\FORMOTEROL\GLYCOPYRROLATE
     Indication: Product used for unknown indication
     Dosage: 160 MCG-9 MCG-4.8 MCG/ACTUATION?INHALE 2 PUFF BY INHALATION ROUTE 2 TIMES EVERY DAY IN THE MORNIN...
     Route: 055
  10. METHIMAZOLE [Concomitant]
     Active Substance: METHIMAZOLE
     Indication: Product used for unknown indication
     Dosage: TOOK 1 TABLET BY ORAL ROUTE EVERY DAY
     Route: 048
  11. ONDANSETRON [Concomitant]
     Active Substance: ONDANSETRON
     Indication: Nausea
     Dosage: TOOK 1-2 TABLET BY ORAL ROUTE EVERY 8 HOURS
     Route: 048
  12. TRAMADOL [Concomitant]
     Active Substance: TRAMADOL\TRAMADOL HYDROCHLORIDE
     Indication: Product used for unknown indication
     Dosage: TAKE 1-2 TABLET BY ORAL ROUTE EVERY 6 HOURS AS NEEDED
     Route: 048

REACTIONS (2)
  - Death [Fatal]
  - Adverse drug reaction [Unknown]
